FAERS Safety Report 17513955 (Version 1)
Quarter: 2020Q1

REPORT INFORMATION
  Report Type: Report from Study
  Country: DE (occurrence: DE)
  Receive Date: 20200306
  Receipt Date: 20200306
  Transmission Date: 20200409
  Serious: Yes (Hospitalization, Other)
  Sender: FDA-Public Use
  Company Number: NVSC2020DE060103

PATIENT
  Age: 85 Year
  Sex: Female

DRUGS (7)
  1. VERAHEXAL 80 [Suspect]
     Active Substance: VERAPAMIL HYDROCHLORIDE
     Indication: PRODUCT USED FOR UNKNOWN INDICATION
     Dosage: 1 DF, QD
     Route: 065
  2. TELMISARTAN - 1 A PHARMA 40 MG TABLETTEN [Suspect]
     Active Substance: TELMISARTAN
     Indication: PRODUCT USED FOR UNKNOWN INDICATION
     Dosage: 1 DF, QD
     Route: 065
  3. CALCIUM [Concomitant]
     Active Substance: CALCIUM
     Indication: PRODUCT USED FOR UNKNOWN INDICATION
     Dosage: 1 DF, QD
     Route: 065
  4. L-THYROXIN [Suspect]
     Active Substance: LEVOTHYROXINE SODIUM
     Indication: PRODUCT USED FOR UNKNOWN INDICATION
     Dosage: 1 DF
     Route: 065
  5. ALDACTONE [Concomitant]
     Active Substance: SPIRONOLACTONE
     Indication: PRODUCT USED FOR UNKNOWN INDICATION
     Dosage: 1 DF, QD
     Route: 065
  6. TORASEMIDE-HEXAL 10 MG [Suspect]
     Active Substance: TORSEMIDE
     Indication: PRODUCT USED FOR UNKNOWN INDICATION
     Dosage: 1 DF, BID
     Route: 065
  7. ALENDRONIC ACID [Suspect]
     Active Substance: ALENDRONIC ACID
     Indication: PRODUCT USED FOR UNKNOWN INDICATION
     Dosage: 1 DF, QW
     Route: 065

REACTIONS (12)
  - Pain [Unknown]
  - Blood pressure abnormal [Unknown]
  - Sciatica [Unknown]
  - Weight increased [Unknown]
  - Accident [Unknown]
  - Peripheral swelling [Unknown]
  - Carotid arteriosclerosis [Unknown]
  - Hypertension [Unknown]
  - Dizziness [Unknown]
  - Hypothyroidism [Unknown]
  - Cerebral atrophy [Unknown]
  - Osteoporosis [Unknown]

NARRATIVE: CASE EVENT DATE: 201906
